FAERS Safety Report 12241923 (Version 1)
Quarter: 2016Q2

REPORT INFORMATION
  Report Type: Spontaneous
  Country: US (occurrence: US)
  Receive Date: 20160406
  Receipt Date: 20160406
  Transmission Date: 20160815
  Serious: Yes (Life-Threatening, Other)
  Sender: FDA-Public Use
  Company Number: US-GLAXOSMITHKLINE-US2016GSK046037

PATIENT
  Sex: Female
  Weight: 87.54 kg

DRUGS (2)
  1. EXCEDRIN MIGRAINE [Suspect]
     Active Substance: ACETAMINOPHEN\ASPIRIN\CAFFEINE
     Indication: PRODUCT USED FOR UNKNOWN INDICATION
     Dosage: UNK
     Dates: start: 2005
  2. ADVIL [Suspect]
     Active Substance: IBUPROFEN
     Indication: HEADACHE
     Dosage: UNK UNK, U
     Dates: start: 2005

REACTIONS (4)
  - Abdominal pain upper [Recovered/Resolved with Sequelae]
  - Drug hypersensitivity [Unknown]
  - Gastric haemorrhage [Recovered/Resolved]
  - Epigastric discomfort [Not Recovered/Not Resolved]

NARRATIVE: CASE EVENT DATE: 2005
